FAERS Safety Report 23494225 (Version 1)
Quarter: 2024Q1

REPORT INFORMATION
  Report Type: Spontaneous
  Country: US (occurrence: US)
  Receive Date: 20240207
  Receipt Date: 20240207
  Transmission Date: 20240410
  Serious: Yes (Hospitalization)
  Sender: FDA-Public Use
  Company Number: US-SA-SAC20240205001164

PATIENT
  Age: 70 Year
  Sex: Male

DRUGS (2)
  1. FLOMAX [Suspect]
     Active Substance: TAMSULOSIN HYDROCHLORIDE
     Indication: Dysuria
     Dosage: UNK
     Route: 065
  2. ORGOVYX [Suspect]
     Active Substance: RELUGOLIX
     Indication: Neoplasm malignant
     Dosage: 120 MG, QD
     Route: 048
     Dates: start: 2023

REACTIONS (11)
  - Fall [Unknown]
  - Decreased appetite [Unknown]
  - Diarrhoea [Unknown]
  - Asthenia [Unknown]
  - Dysuria [Unknown]
  - Prostatic specific antigen increased [Unknown]
  - Alopecia [Unknown]
  - Presyncope [Unknown]
  - Head injury [Unknown]
  - Dizziness [Unknown]
  - Therapy interrupted [Unknown]
